FAERS Safety Report 15776328 (Version 1)
Quarter: 2018Q4

REPORT INFORMATION
  Report Type: Spontaneous
  Country: US (occurrence: US)
  Receive Date: 20181211
  Receipt Date: 20181211
  Transmission Date: 20190205
  Serious: No
  Sender: FDA-Public Use
  Company Number: None

PATIENT
  Age: 5 Year

DRUGS (1)
  1. ORKAMBI [Suspect]
     Active Substance: IVACAFTOR\LUMACAFTOR
     Dates: start: 20181115

REACTIONS (3)
  - Diarrhoea [None]
  - Abnormal faeces [None]
  - Nasopharyngitis [None]

NARRATIVE: CASE EVENT DATE: 20181115
